FAERS Safety Report 7700405-7 (Version None)
Quarter: 2011Q3

REPORT INFORMATION
  Report Type: 
  Country: None (occurrence: None)
  Receive Date: 20110816
  Receipt Date: 20110802
  Transmission Date: 20111222
  Serious: Yes (Hospitalization, Other)
  Sender: FDA-Public Use
  Company Number: DSA_47378_2011

PATIENT
  Sex: Female

DRUGS (24)
  1. CARDIZEM [Suspect]
     Indication: PRODUCT USED FOR UNKNOWN INDICATION
     Dosage: (DF)
  2. DIOVAN [Suspect]
     Indication: PRODUCT USED FOR UNKNOWN INDICATION
     Dosage: (DF)
  3. BYSTOLIC [Suspect]
     Indication: PRODUCT USED FOR UNKNOWN INDICATION
     Dosage: (DF)
  4. DEPAKOTE [Suspect]
     Indication: CONVULSION
     Dosage: (DF)
     Dates: start: 19960101
  5. NORVASC [Suspect]
     Indication: HYPERTENSION
     Dosage: (2.5 MG QD ORAL), (5 MG QD ORAL), (5 MG QD ORAL)
     Route: 048
     Dates: start: 20100101
  6. NORVASC [Suspect]
     Indication: HYPERTENSION
     Dosage: (2.5 MG QD ORAL), (5 MG QD ORAL), (5 MG QD ORAL)
     Route: 048
     Dates: start: 19950101
  7. NORVASC [Suspect]
     Indication: HYPERTENSION
     Dosage: (2.5 MG QD ORAL), (5 MG QD ORAL), (5 MG QD ORAL)
     Route: 048
     Dates: start: 19970101
  8. BENICAR [Suspect]
     Indication: HYPERTENSION
     Dosage: (DF)
  9. MACROBID [Suspect]
     Indication: PRODUCT USED FOR UNKNOWN INDICATION
     Dosage: (DF)
  10. FUROSEMIDE [Suspect]
     Indication: PRODUCT USED FOR UNKNOWN INDICATION
     Dosage: (DF)
  11. REGLAN [Suspect]
     Indication: PRODUCT USED FOR UNKNOWN INDICATION
     Dosage: (DF)
  12. HYDROCHLOROTHIAZIDE [Suspect]
     Indication: PRODUCT USED FOR UNKNOWN INDICATION
     Dosage: (DF)
  13. AVAPRO [Suspect]
     Indication: HYPERTENSION
     Dosage: (DF)
  14. DILANTIN [Suspect]
     Indication: PRODUCT USED FOR UNKNOWN INDICATION
     Dosage: (DF)
     Dates: start: 19960101
  15. BACTRIM [Suspect]
     Indication: PRODUCT USED FOR UNKNOWN INDICATION
     Dosage: (DF)
  16. CLONIDINE [Concomitant]
  17. ATACAND [Suspect]
     Indication: PRODUCT USED FOR UNKNOWN INDICATION
     Dosage: (32 MG QD)
  18. LEVOTHYROXINE SODIUM [Concomitant]
  19. LOSARTAN [Suspect]
     Indication: PRODUCT USED FOR UNKNOWN INDICATION
     Dosage: (DF)
  20. CIPROFLOXACIN HYDROCHLORIDE [Concomitant]
     Indication: PRODUCT USED FOR UNKNOWN INDICATION
     Dosage: (DF)
  21. LISINOPRIL [Suspect]
     Indication: PRODUCT USED FOR UNKNOWN INDICATION
     Dosage: (DF)
  22. XANAX [Suspect]
     Indication: PRODUCT USED FOR UNKNOWN INDICATION
     Dosage: (DF)
  23. LEVAQUIN [Suspect]
     Indication: PRODUCT USED FOR UNKNOWN INDICATION
     Dosage: (DF)
  24. LIDOCAINE HCL [Suspect]
     Indication: PARONYCHIA
     Dosage: (DF)
     Dates: start: 20100513, end: 20100513

REACTIONS (17)
  - INSOMNIA [None]
  - ARTERIOSCLEROSIS CORONARY ARTERY [None]
  - ABDOMINAL DISTENSION [None]
  - PALPITATIONS [None]
  - WRONG TECHNIQUE IN DRUG USAGE PROCESS [None]
  - CYSTITIS [None]
  - BURNING SENSATION [None]
  - INGROWING NAIL [None]
  - CHOLECYSTECTOMY [None]
  - BLOOD COUNT ABNORMAL [None]
  - BLOOD PRESSURE INCREASED [None]
  - DIZZINESS [None]
  - WEIGHT DECREASED [None]
  - ERYTHEMA [None]
  - LOSS OF CONSCIOUSNESS [None]
  - TOE OPERATION [None]
  - HEADACHE [None]
